FAERS Safety Report 19306259 (Version 2)
Quarter: 2021Q2

REPORT INFORMATION
  Report Type: Spontaneous
  Country: CA (occurrence: CA)
  Receive Date: 20210525
  Receipt Date: 20210603
  Transmission Date: 20210717
  Serious: Yes (Hospitalization)
  Sender: FDA-Public Use
  Company Number: CA-PFIZER INC-2021476072

PATIENT
  Age: 58 Year
  Sex: Female
  Weight: 37.2 kg

DRUGS (3)
  1. FEMARA [Concomitant]
     Active Substance: LETROZOLE
     Dosage: 2.5 MG, 1X/DAY (2.5 MG ORAL ONCE DAILY SCH) (TAKE 2.5 MG LETROZOLE DAILY)
     Route: 048
  2. LETROZOLE. [Concomitant]
     Active Substance: LETROZOLE
     Dosage: 2.5 MG
     Route: 048
  3. IBRANCE [Suspect]
     Active Substance: PALBOCICLIB
     Dosage: 125 MG, 1X/DAY (21 DAYS ON, 7 DAYS OFF) ,TAKE 125 MG DAILY WITH FOOD, (3 WEEKS ON 1 WEEK OFF)
     Route: 048

REACTIONS (1)
  - Pulmonary oedema [Unknown]
